FAERS Safety Report 9638426 (Version 2)
Quarter: 2013Q4

REPORT INFORMATION
  Report Type: Spontaneous
  Country: IT (occurrence: IT)
  Receive Date: 20131022
  Receipt Date: 20131022
  Transmission Date: 20140711
  Serious: Yes (Hospitalization, Other)
  Sender: FDA-Public Use
  Company Number: IT-PFIZER INC-2013280757

PATIENT
  Age: 22 Year
  Sex: Female

DRUGS (2)
  1. SOLU-CORTEF [Suspect]
     Indication: RHINITIS ALLERGIC
     Dosage: 300 MG, UNK
  2. RANITIDINE HYDROCHLORIDE [Suspect]
     Indication: RHINITIS ALLERGIC
     Dosage: 100 MG, UNK

REACTIONS (1)
  - Anaphylactic reaction [Recovering/Resolving]
